FAERS Safety Report 18190629 (Version 1)
Quarter: 2020Q3

REPORT INFORMATION
  Report Type: Spontaneous
  Country: CA (occurrence: CA)
  Receive Date: 20200825
  Receipt Date: 20200825
  Transmission Date: 20201103
  Serious: Yes (Death, Hospitalization, Other)
  Sender: FDA-Public Use
  Company Number: CA-TEVA-2020-CA-1817448

PATIENT
  Age: 4 Month
  Sex: Female

DRUGS (9)
  1. CISPLATIN INJECTION [Concomitant]
     Active Substance: CISPLATIN
  2. THIOTEPA. [Suspect]
     Active Substance: THIOTEPA
     Indication: ATYPICAL TERATOID/RHABDOID TUMOUR OF CNS
     Dosage: 10 MG/KG DAILY;
     Route: 065
  3. METHYLPREDNISOLONE SODIUM SUCCINATE FOR INJECTION [Suspect]
     Active Substance: METHYLPREDNISOLONE SODIUM SUCCINATE
     Indication: PRODUCT USED FOR UNKNOWN INDICATION
     Dosage: 220 MG/KG DAILY;
     Route: 042
  4. CARBOPLATIN. [Suspect]
     Active Substance: CARBOPLATIN
     Indication: ATYPICAL TERATOID/RHABDOID TUMOUR OF CNS
     Dosage: 17 MG/KG DAILY;
     Route: 065
  5. CYCLOPHOSPHAMIDE. [Concomitant]
     Active Substance: CYCLOPHOSPHAMIDE
  6. INOMAX [Concomitant]
     Active Substance: NITRIC OXIDE
  7. VINCRISTINE SULFATE. [Concomitant]
     Active Substance: VINCRISTINE SULFATE
  8. ETOPOSIDE. [Concomitant]
     Active Substance: ETOPOSIDE
  9. METHOTREXATE. [Concomitant]
     Active Substance: METHOTREXATE

REACTIONS (2)
  - Pulmonary arterial hypertension [Fatal]
  - Pulmonary vascular disorder [Fatal]
